FAERS Safety Report 8892716 (Version 1)
Quarter: 2012Q4

REPORT INFORMATION
  Report Type: 
  Country: US (occurrence: US)
  Receive Date: 20121107
  Receipt Date: 20121107
  Transmission Date: 20130627
  Serious: No
  Sender: FDA-Public Use
  Company Number: US-AMGEN-USASP2011057118

PATIENT
  Age: 63 Year
  Sex: Female
  Weight: 57 kg

DRUGS (9)
  1. ENBREL [Suspect]
     Indication: PRODUCT USED FOR UNKNOWN INDICATION
     Dosage: 25 mg, 2 times/wk
     Route: 058
  2. METHOTREXATE [Concomitant]
     Dosage: 2.5 mg, UNK
  3. TRAMADIL [Concomitant]
  4. LISINOPRIL [Concomitant]
     Dosage: 5 mg, UNK
  5. ESTRADIOL [Concomitant]
     Dosage: 0.05 mg, UNK
  6. MEDROXYPROGESTERONE [Concomitant]
     Dosage: 2.5 mg, UNK
  7. MULTIVITAMIN                       /00097801/ [Concomitant]
  8. FOLIC ACID [Concomitant]
     Dosage: 400 mug, UNK
  9. CALCIUM + VITAMIN D                /01483701/ [Concomitant]

REACTIONS (2)
  - Injection site urticaria [Unknown]
  - Injection site reaction [Unknown]
